FAERS Safety Report 5146483-3 (Version None)
Quarter: 2006Q4

REPORT INFORMATION
  Report Type: 
  Country: None (occurrence: None)
  Receive Date: 20061102
  Receipt Date: 20061025
  Transmission Date: 20070319
  Serious: No
  Sender: FDA-Public Use
  Company Number: HQWYE604226OCT06

PATIENT
  Age: 75 Year
  Sex: Female

DRUGS (1)
  1. TYGACIL [Suspect]
     Indication: ABDOMINAL INFECTION
     Dosage: INTRAVENOUS
     Route: 042
     Dates: start: 20061001, end: 20061023

REACTIONS (1)
  - HEPATIC FAILURE [None]
